FAERS Safety Report 13618340 (Version 1)
Quarter: 2017Q2

REPORT INFORMATION
  Report Type: Spontaneous
  Country: US (occurrence: US)
  Receive Date: 20170606
  Receipt Date: 20170606
  Transmission Date: 20170830
  Serious: No
  Sender: FDA-Public Use
  Company Number: US-JNJFOC-20170425342

PATIENT
  Age: 88 Year
  Sex: Male
  Weight: 60.33 kg

DRUGS (2)
  1. IMODIUM MULTI-SYMPTOM RELIEF [Suspect]
     Active Substance: DIMETHICONE\LOPERAMIDE HYDROCHLORIDE
     Indication: DIARRHOEA
     Dosage: 1 CAPLET, 1 TIME
     Route: 048
     Dates: start: 20170424
  2. IMODIUM MULTI-SYMPTOM RELIEF [Suspect]
     Active Substance: DIMETHICONE\LOPERAMIDE HYDROCHLORIDE
     Indication: FAECES SOFT
     Dosage: 1 CAPLET, 1 TIME
     Route: 048
     Dates: start: 20170424

REACTIONS (1)
  - Incorrect dose administered [Unknown]
